FAERS Safety Report 7842036-4 (Version None)
Quarter: 2011Q4

REPORT INFORMATION
  Report Type: 
  Country: None (occurrence: None)
  Receive Date: 20111025
  Receipt Date: 20111017
  Transmission Date: 20120403
  Serious: Yes (Other)
  Sender: FDA-Public Use
  Company Number: PHFR2011GB05944

PATIENT
  Sex: Male

DRUGS (2)
  1. ZOMETA [Suspect]
     Dosage: UNK
     Route: 065
  2. HORMONES NOS [Suspect]

REACTIONS (1)
  - LOWER RESPIRATORY TRACT INFECTION [None]
